FAERS Safety Report 12060410 (Version 2)
Quarter: 2016Q2

REPORT INFORMATION
  Report Type: Spontaneous
  Country: US (occurrence: US)
  Receive Date: 20160210
  Receipt Date: 20160415
  Transmission Date: 20160815
  Serious: Yes (Hospitalization)
  Sender: FDA-Public Use
  Company Number: US-ELI_LILLY_AND_COMPANY-US201602002040

PATIENT
  Sex: Male
  Weight: 72.56 kg

DRUGS (1)
  1. ADCIRCA [Suspect]
     Active Substance: TADALAFIL
     Indication: PRODUCT USED FOR UNKNOWN INDICATION
     Dosage: UNK, UNKNOWN (HALF TABLET TAKEN DAILY)
     Route: 048
     Dates: start: 201510

REACTIONS (3)
  - Fall [Recovered/Resolved]
  - Wrong technique in product usage process [Unknown]
  - Hypotension [Recovered/Resolved]
